FAERS Safety Report 19784019 (Version 1)
Quarter: 2021Q3

REPORT INFORMATION
  Report Type: Report from Study
  Country: CA (occurrence: CA)
  Receive Date: 20210903
  Receipt Date: 20210903
  Transmission Date: 20211014
  Serious: Yes (Other)
  Sender: FDA-Public Use
  Company Number: CA-JNJFOC-20210843981

PATIENT
  Age: 58 Year
  Sex: Female
  Weight: 48 kg

DRUGS (1)
  1. REMICADE [Suspect]
     Active Substance: INFLIXIMAB
     Indication: CROHN^S DISEASE
     Dosage: PATIENT HAD INFUSION ON 09?JUL?2021.
     Route: 042
     Dates: start: 20120827

REACTIONS (4)
  - Herpes ophthalmic [Recovering/Resolving]
  - Drug ineffective [Unknown]
  - Abdominal pain [Unknown]
  - Drug level decreased [Unknown]
